FAERS Safety Report 8872860 (Version 1)
Quarter: 2012Q4

REPORT INFORMATION
  Report Type: 
  Country: US (occurrence: US)
  Receive Date: 20121029
  Receipt Date: 20121029
  Transmission Date: 20130627
  Serious: No
  Sender: FDA-Public Use
  Company Number: US-PFIZER INC-2012269478

PATIENT
  Age: 76 Year
  Sex: Male
  Weight: 63.49 kg

DRUGS (2)
  1. ZOLOFT [Suspect]
     Indication: FEELING UNWELL
     Dosage: 50 mg tablet into half, daily
     Route: 048
     Dates: start: 20121021, end: 20121025
  2. BARACLUDE [Concomitant]
     Dosage: 0.5 mg, daily

REACTIONS (5)
  - Agitation [Recovering/Resolving]
  - Mood altered [Recovering/Resolving]
  - Dizziness [Recovering/Resolving]
  - Fatigue [Recovering/Resolving]
  - Somnolence [Recovering/Resolving]
